FAERS Safety Report 12613080 (Version 5)
Quarter: 2016Q4

REPORT INFORMATION
  Report Type: Spontaneous
  Country: US (occurrence: US)
  Receive Date: 20160802
  Receipt Date: 20161123
  Transmission Date: 20170207
  Serious: No
  Sender: FDA-Public Use
  Company Number: US-ALEXION-A201605537

PATIENT
  Sex: Female

DRUGS (1)
  1. SOLIRIS [Suspect]
     Active Substance: ECULIZUMAB
     Indication: PAROXYSMAL NOCTURNAL HAEMOGLOBINURIA
     Dosage: 900 MG, Q2W
     Route: 042
     Dates: end: 20160721

REACTIONS (6)
  - Nausea [Unknown]
  - Headache [Recovering/Resolving]
  - Tooth fracture [Unknown]
  - Pyrexia [Unknown]
  - Neck pain [Unknown]
  - Back pain [Recovered/Resolved]
